FAERS Safety Report 25266774 (Version 1)
Quarter: 2025Q2

REPORT INFORMATION
  Report Type: Spontaneous
  Country: CH (occurrence: CH)
  Receive Date: 20250505
  Receipt Date: 20250505
  Transmission Date: 20250716
  Serious: Yes (Other)
  Sender: BRISTOL-MYERS SQUIBB COMPANY
  Company Number: None

PATIENT
  Age: 69 Year
  Sex: Female
  Weight: 59 kg

DRUGS (4)
  1. YERVOY [Suspect]
     Active Substance: IPILIMUMAB
     Indication: Ocular melanoma
     Dosage: CYCLE 1
     Route: 040
     Dates: start: 20241219, end: 20241219
  2. YERVOY [Suspect]
     Active Substance: IPILIMUMAB
     Dosage: CYCLE 2
     Route: 040
     Dates: start: 20250109, end: 20250109
  3. OPDIVO [Suspect]
     Active Substance: NIVOLUMAB
     Indication: Ocular melanoma
     Route: 040
     Dates: start: 20241219, end: 20241219
  4. OPDIVO [Suspect]
     Active Substance: NIVOLUMAB
     Route: 040
     Dates: start: 20250109, end: 20250109

REACTIONS (3)
  - Arthralgia [Recovering/Resolving]
  - Sjogren^s syndrome [Recovering/Resolving]
  - Dry eye [Recovering/Resolving]

NARRATIVE: CASE EVENT DATE: 20250103
